FAERS Safety Report 24767431 (Version 1)
Quarter: 2024Q4

REPORT INFORMATION
  Report Type: Spontaneous
  Country: US (occurrence: None)
  Receive Date: 20241223
  Receipt Date: 20241223
  Transmission Date: 20250115
  Serious: Yes (Other)
  Sender: Public
  Company Number: None

PATIENT
  Age: 0 Year
  Sex: Male
  Weight: 3.86 kg

DRUGS (1)
  1. SERTRALINE [Suspect]
     Active Substance: SERTRALINE HYDROCHLORIDE
     Dates: start: 20230714

REACTIONS (4)
  - Respiratory distress [None]
  - Foetal heart rate decreased [None]
  - Foetal exposure during delivery [None]
  - Maternal exposure during pregnancy [None]

NARRATIVE: CASE EVENT DATE: 20240407
